FAERS Safety Report 19683847 (Version 1)
Quarter: 2021Q3

REPORT INFORMATION
  Report Type: Spontaneous
  Country: US (occurrence: US)
  Receive Date: 20210811
  Receipt Date: 20210811
  Transmission Date: 20211014
  Serious: No
  Sender: FDA-Public Use
  Company Number: US-ELI_LILLY_AND_COMPANY-US202107006801

PATIENT
  Age: 74 Year
  Sex: Male

DRUGS (1)
  1. TRULICITY [Suspect]
     Active Substance: DULAGLUTIDE
     Indication: PRODUCT USED FOR UNKNOWN INDICATION
     Dosage: UNK UNK, UNKNOWN
     Route: 065
     Dates: start: 2018

REACTIONS (5)
  - Illness [Unknown]
  - Limb discomfort [Unknown]
  - Illness anxiety disorder [Unknown]
  - Diarrhoea [Unknown]
  - Procedural complication [Unknown]

NARRATIVE: CASE EVENT DATE: 202008
